FAERS Safety Report 5414036-5 (Version None)
Quarter: 2007Q3

REPORT INFORMATION
  Report Type: 
  Country: None (occurrence: None)
  Receive Date: 20070814
  Receipt Date: 20070801
  Transmission Date: 20080115
  Serious: Yes (Hospitalization)
  Sender: FDA-Public Use
  Company Number: IN-ELI_LILLY_AND_COMPANY-IN200708000280

PATIENT
  Sex: Female

DRUGS (3)
  1. HUMULIN R [Suspect]
     Dates: start: 20070701, end: 20070701
  2. HUMINSULIN 50% REGULAR, 50% NPH [Suspect]
     Dosage: 25 U, EACH MORNING
  3. HUMINSULIN 50% REGULAR, 50% NPH [Suspect]
     Dosage: 15 U, EACH EVENING

REACTIONS (4)
  - DIABETES MELLITUS INADEQUATE CONTROL [None]
  - DRUG INEFFECTIVE [None]
  - SEPSIS [None]
  - URINARY TRACT INFECTION [None]
